FAERS Safety Report 9677743 (Version 1)
Quarter: 2013Q4

REPORT INFORMATION
  Report Type: Spontaneous
  Country: US (occurrence: None)
  Receive Date: 20131107
  Receipt Date: 20131107
  Transmission Date: 20140711
  Serious: No
  Sender: FDA-Public Use
  Company Number: None

PATIENT
  Age: 43 Year
  Sex: Female
  Weight: 63.05 kg

DRUGS (22)
  1. XELJANZ [Suspect]
     Indication: RHEUMATOID ARTHRITIS
     Dosage: ONE PILL BID ORAL
     Route: 048
     Dates: start: 20130919, end: 20131030
  2. ALLEGRA [Concomitant]
  3. ALPRAZOLAM [Concomitant]
  4. AMLODIPINE [Concomitant]
  5. BACLOFEN [Concomitant]
  6. DILTIAZEM [Concomitant]
  7. PERCOCET SODIUM [Concomitant]
  8. ENALAPRIL [Concomitant]
  9. FLAXSEED OIL [Concomitant]
  10. GABAPENTIN [Concomitant]
  11. HYDROXYCHLOROQUINE [Concomitant]
  12. LANTUS [Concomitant]
  13. LEFLUNOMIDE [Concomitant]
  14. LITHIUM CARBONATE [Concomitant]
  15. METFORMIN [Concomitant]
  16. MIRTAZAPINE [Concomitant]
  17. PANTOPRAZOLE SODIUM [Concomitant]
  18. RESTASIS 0.05% OPHTHALMIC SOLUTION [Concomitant]
  19. ROBINUL [Concomitant]
  20. SEROQUEL [Concomitant]
  21. SYSTANE EYE DROPS [Concomitant]
  22. TRAZODONE [Concomitant]

REACTIONS (4)
  - Rash maculo-papular [None]
  - Rash erythematous [None]
  - Abdominal pain [None]
  - Constipation [None]
